FAERS Safety Report 21170818 (Version 1)
Quarter: 2022Q3

REPORT INFORMATION
  Report Type: Spontaneous
  Country: TN (occurrence: TN)
  Receive Date: 20220804
  Receipt Date: 20220804
  Transmission Date: 20221027
  Serious: Yes (Hospitalization)
  Sender: FDA-Public Use
  Company Number: TN-STRIDES ARCOLAB LIMITED-2022SP009772

PATIENT
  Age: 39 Year
  Sex: Male

DRUGS (4)
  1. DOXYCYCLINE [Interacting]
     Active Substance: DOXYCYCLINE
     Indication: Malaria relapse
     Dosage: 100 MILLIGRAM PER DAY
     Route: 065
  2. DOXYCYCLINE [Interacting]
     Active Substance: DOXYCYCLINE
     Indication: Plasmodium falciparum infection
     Dosage: UNK, MAINTANANCE DOSE
     Route: 065
  3. QUININE [Interacting]
     Active Substance: QUININE
     Indication: Malaria relapse
     Dosage: 750 MILLIGRAM, TID
     Route: 048
  4. QUININE [Interacting]
     Active Substance: QUININE
     Indication: Plasmodium falciparum infection

REACTIONS (2)
  - Drug interaction [Unknown]
  - Cinchonism [Recovered/Resolved]
